FAERS Safety Report 24744045 (Version 1)
Quarter: 2024Q4

REPORT INFORMATION
  Report Type: Spontaneous
  Country: AU (occurrence: AU)
  Receive Date: 20241217
  Receipt Date: 20241217
  Transmission Date: 20250114
  Serious: No
  Sender: PFIZER
  Company Number: AU-PFIZER INC-202400319352

PATIENT
  Sex: Female

DRUGS (1)
  1. ENBREL [Suspect]
     Active Substance: ETANERCEPT
     Dosage: 25 MG, 2X/WEEK

REACTIONS (5)
  - Allergic reaction to excipient [Unknown]
  - Product preparation issue [Unknown]
  - Poor quality product administered [Unknown]
  - Device issue [Unknown]
  - Multiple use of single-use product [Unknown]
